FAERS Safety Report 4612621-1 (Version None)
Quarter: 2005Q1

REPORT INFORMATION
  Report Type: 
  Country: None (occurrence: None)
  Receive Date: 20050316
  Receipt Date: 20050316
  Transmission Date: 20050727
  Serious: No
  Sender: FDA-Public Use
  Company Number: None

PATIENT
  Age: 59 Year
  Sex: Male
  Weight: 71 kg

DRUGS (9)
  1. STELAZINE [Suspect]
     Indication: SCHIZOPHRENIA
     Dosage: 5MG BID ORAL
     Route: 048
     Dates: start: 20050201, end: 20050222
  2. PREDNISONE [Concomitant]
  3. POTASSIUM CHLORIDE [Concomitant]
  4. PROTONIX [Concomitant]
  5. MAGNESIUM OXIDE [Concomitant]
  6. INSULIN [Concomitant]
  7. LASIX [Concomitant]
  8. LOVENOX [Concomitant]
  9. ASPIRIN [Concomitant]

REACTIONS (1)
  - PLATELET COUNT DECREASED [None]
